FAERS Safety Report 13471546 (Version 1)
Quarter: 2017Q2

REPORT INFORMATION
  Report Type: Spontaneous
  Country: US (occurrence: US)
  Receive Date: 20170421
  Receipt Date: 20170421
  Transmission Date: 20170830
  Serious: Yes (Other)
  Sender: FDA-Public Use
  Company Number: None

PATIENT
  Age: 61 Year
  Sex: Female
  Weight: 75.36 kg

DRUGS (2)
  1. DILTIAZEM CD 240MG OCEANSIDE [Suspect]
     Active Substance: DILTIAZEM
     Indication: HYPERTENSION
     Dosage: 240MG TQD ORAL
     Route: 048
     Dates: start: 2013
  2. DILTIAZEM CD 240MG OCEANSIDE [Suspect]
     Active Substance: DILTIAZEM
     Indication: HEART RATE IRREGULAR
     Dosage: 240MG TQD ORAL
     Route: 048
     Dates: start: 2013

REACTIONS (3)
  - Swelling [None]
  - Eye pain [None]
  - Vision blurred [None]
